FAERS Safety Report 4543313-5 (Version None)
Quarter: 2004Q4

REPORT INFORMATION
  Report Type: 
  Country: None (occurrence: None)
  Receive Date: 20041230
  Receipt Date: 20041230
  Transmission Date: 20050328
  Serious: Yes (Other)
  Sender: FDA-Public Use
  Company Number: None

PATIENT
  Age: 41 Year
  Sex: Male
  Weight: 71.6683 kg

DRUGS (1)
  1. SEPTOCAINE [Suspect]

REACTIONS (6)
  - BURNING SENSATION [None]
  - DYSGEUSIA [None]
  - HYPOAESTHESIA ORAL [None]
  - HYPOGEUSIA [None]
  - MASTICATION DISORDER [None]
  - POST PROCEDURAL COMPLICATION [None]
